FAERS Safety Report 4922532-X (Version None)
Quarter: 2006Q1

REPORT INFORMATION
  Report Type: 
  Country: None (occurrence: None)
  Receive Date: 20060224
  Receipt Date: 20060215
  Transmission Date: 20060701
  Serious: Yes (Death, Hospitalization)
  Sender: FDA-Public Use
  Company Number: US-ROCHE-436817

PATIENT
  Age: 51 Year
  Sex: Male
  Weight: 97.5 kg

DRUGS (2)
  1. PEG-INTERFERON A-2A (RO 25-8310) [Suspect]
     Route: 058
     Dates: start: 20050512, end: 20050913
  2. RIBAVIRIN [Suspect]
     Route: 048
     Dates: start: 20050512, end: 20050917

REACTIONS (8)
  - DISSEMINATED INTRAVASCULAR COAGULATION [None]
  - EROSIVE DUODENITIS [None]
  - GASTRIC HAEMORRHAGE [None]
  - GASTRITIS EROSIVE [None]
  - HAEMATEMESIS [None]
  - HYPOTENSION [None]
  - INTERNATIONAL NORMALISED RATIO INCREASED [None]
  - TACHYCARDIA [None]
